FAERS Safety Report 24267105 (Version 3)
Quarter: 2025Q1

REPORT INFORMATION
  Report Type: Spontaneous
  Country: JP (occurrence: JP)
  Receive Date: 20240830
  Receipt Date: 20250122
  Transmission Date: 20250408
  Serious: Yes (Death, Other)
  Sender: ALEXION PHARMACEUTICALS
  Company Number: 2024A194708

PATIENT
  Age: 41 Year
  Weight: 46 kg

DRUGS (2)
  1. LYNPARZA [Suspect]
     Active Substance: OLAPARIB
     Dosage: 300 MILLIGRAM, BID
  2. AVASTIN [Concomitant]
     Active Substance: BEVACIZUMAB
     Indication: Ovarian cancer

REACTIONS (3)
  - Interstitial lung disease [Recovered/Resolved]
  - Pulmonary toxicity [Not Recovered/Not Resolved]
  - Malignant neoplasm progression [Fatal]
